FAERS Safety Report 15901493 (Version 2)
Quarter: 2019Q1

REPORT INFORMATION
  Report Type: Spontaneous
  Country: IE (occurrence: IE)
  Receive Date: 20190201
  Receipt Date: 20190222
  Transmission Date: 20190417
  Serious: Yes (Hospitalization)
  Sender: FDA-Public Use
  Company Number: IE-VERTEX PHARMACEUTICALS-2019-000338

PATIENT
  Age: 19 Year
  Sex: Male

DRUGS (10)
  1. SYMKEVI [Suspect]
     Active Substance: IVACAFTOR\TEZACAFTOR
     Indication: CYSTIC FIBROSIS
     Dosage: 100MG TEZACAFTOR/150MG IVACAFTOR
     Route: 048
     Dates: start: 20190108, end: 20190108
  2. COLOBREATHE [Concomitant]
     Active Substance: COLISTIMETHATE SODIUM
     Dosage: 1662500, BID
  3. CREON [Concomitant]
     Active Substance: PANCRELIPASE AMYLASE\PANCRELIPASE LIPASE\PANCRELIPASE PROTEASE
     Dosage: WITH FOOD
  4. COLISTIN [Concomitant]
     Active Substance: COLISTIN
     Dosage: ALTERNATING WITH AZTREONAM EVERY 28 DAYS
  5. CAYSTON [Concomitant]
     Active Substance: AZTREONAM
     Dosage: 75 MG, TID
  6. AZITHROMYCIN ANHYDROUS. [Concomitant]
     Active Substance: AZITHROMYCIN ANHYDROUS
     Dosage: 500 MG, 3 DAYS PER WEEK
  7. DORNASE ALFA. [Concomitant]
     Active Substance: DORNASE ALFA
     Dosage: 2.5 MG, QD
     Route: 055
  8. SALBUTAMOL [Concomitant]
     Active Substance: ALBUTEROL
     Dosage: UNK, PRN
     Route: 055
  9. AZTREONAM. [Concomitant]
     Active Substance: AZTREONAM
     Dosage: ALTERNATING WITH COLISTIN EVERY 28 DAYS
  10. NEBUSAL [Concomitant]
     Active Substance: SODIUM CHLORIDE
     Dosage: 7 %, BID
     Route: 055

REACTIONS (2)
  - Drug eruption [Recovered/Resolved]
  - Sinus tachycardia [Recovered/Resolved]

NARRATIVE: CASE EVENT DATE: 20190108
